FAERS Safety Report 10682289 (Version 1)
Quarter: 2014Q4

REPORT INFORMATION
  Report Type: Spontaneous
  Country: US (occurrence: None)
  Receive Date: 20141229
  Receipt Date: 20141229
  Transmission Date: 20150529
  Serious: No
  Sender: FDA-Public Use
  Company Number: None

PATIENT
  Age: 45 Year
  Sex: Female
  Weight: 70.31 kg

DRUGS (1)
  1. NASONEX [Suspect]
     Active Substance: MOMETASONE FUROATE
     Indication: SINUS DISORDER
     Dosage: 2 SPRAYS IN EACH NOSTRIL
     Route: 045
     Dates: start: 20141223, end: 20141223

REACTIONS (8)
  - Rash macular [None]
  - Pruritus [None]
  - Nasal congestion [None]
  - Lip swelling [None]
  - Toothache [None]
  - Dyspnoea [None]
  - Nausea [None]
  - Chills [None]

NARRATIVE: CASE EVENT DATE: 20141223
